FAERS Safety Report 5023120-X (Version None)
Quarter: 2006Q2

REPORT INFORMATION
  Report Type: 
  Country: None (occurrence: None)
  Receive Date: 20060428
  Receipt Date: 20060202
  Transmission Date: 20061013
  Serious: No
  Sender: FDA-Public Use
  Company Number: 012115

PATIENT
  Age: 25 Year
  Sex: Male

DRUGS (4)
  1. PRIALT [Suspect]
     Indication: PAIN
     Dosage: SEE IMAGE
     Route: 037
     Dates: start: 20050506, end: 20050520
  2. PRIALT [Suspect]
     Indication: PAIN
     Dosage: SEE IMAGE
     Route: 037
     Dates: start: 20050520, end: 20050705
  3. DILAUDID [Concomitant]
  4. BACLOFEN [Concomitant]

REACTIONS (4)
  - DIZZINESS [None]
  - ERECTILE DYSFUNCTION [None]
  - HYPOTONIA [None]
  - LETHARGY [None]
